FAERS Safety Report 25195173 (Version 1)
Quarter: 2025Q2

REPORT INFORMATION
  Report Type: Spontaneous
  Country: US (occurrence: US)
  Receive Date: 20250415
  Receipt Date: 20250415
  Transmission Date: 20250717
  Serious: No
  Sender: SANOFI AVENTIS
  Company Number: US-SA-2025SA103419

PATIENT
  Age: 11 Year
  Sex: Female
  Weight: 34.09 kg

DRUGS (5)
  1. DUPIXENT [Suspect]
     Active Substance: DUPILUMAB
     Indication: Dermatitis atopic
     Dosage: 200 MG, QOW
     Route: 058
     Dates: start: 20250218
  2. CLARITIN [Concomitant]
     Active Substance: LORATADINE
  3. FLUTICASONE FUROATE\SALMETEROL XINAFOATE [Concomitant]
     Active Substance: FLUTICASONE FUROATE\SALMETEROL XINAFOATE
  4. WELLBUTRIN SR [Concomitant]
     Active Substance: BUPROPION HYDROCHLORIDE
  5. ALBUTEROL SULFATE [Concomitant]
     Active Substance: ALBUTEROL SULFATE

REACTIONS (1)
  - Rash macular [Recovered/Resolved]

NARRATIVE: CASE EVENT DATE: 20250101
